FAERS Safety Report 22256355 (Version 2)
Quarter: 2023Q2

REPORT INFORMATION
  Report Type: Spontaneous
  Country: US (occurrence: US)
  Receive Date: 20230426
  Receipt Date: 20230522
  Transmission Date: 20230722
  Serious: No
  Sender: FDA-Public Use
  Company Number: US-BRISTOL-MYERS SQUIBB COMPANY-2023-059043

PATIENT
  Age: 43 Year
  Sex: Female
  Weight: 65.32 kg

DRUGS (2)
  1. ORENCIA [Suspect]
     Active Substance: ABATACEPT
     Indication: Rheumatoid arthritis
     Route: 058
     Dates: start: 20230406, end: 20230420
  2. LEVOTHYROXINE [Concomitant]
     Active Substance: LEVOTHYROXINE
     Indication: Product used for unknown indication

REACTIONS (6)
  - Nausea [Unknown]
  - Oral discomfort [Unknown]
  - Device leakage [Unknown]
  - Throat irritation [Recovering/Resolving]
  - Throat tightness [Recovering/Resolving]
  - Dry throat [Recovering/Resolving]

NARRATIVE: CASE EVENT DATE: 20230406
